FAERS Safety Report 8524301-0 (Version None)
Quarter: 2012Q2

REPORT INFORMATION
  Report Type: 
  Country: None (occurrence: None)
  Receive Date: 20120406
  Receipt Date: 20111021
  Transmission Date: 20120825
  Serious: Yes (Hospitalization)
  Sender: FDA-Public Use
  Company Number: US-CYPR-2011-000056

PATIENT
  Sex: Male
  Weight: 69.8539 kg

DRUGS (24)
  1. CLOPIDOGREL [Suspect]
     Indication: ANTIPLATELET THERAPY
     Dosage: 75 MG QD ORAL, 75 MG QD ORAL
     Route: 048
     Dates: start: 20111022
  2. CLOPIDOGREL [Suspect]
     Indication: ANTIPLATELET THERAPY
     Dosage: 75 MG QD ORAL, 75 MG QD ORAL
     Route: 048
     Dates: start: 20110223, end: 20111020
  3. ASPIRIN [Suspect]
     Indication: ANTIPLATELET THERAPY
     Dosage: 325 MG QD ORAL
     Route: 048
     Dates: start: 20110223
  4. LANOXIN [Concomitant]
  5. GLOCOTROL [Concomitant]
  6. MULTIVITAMIN [Concomitant]
  7. METOPROLOL SUCCINATE [Concomitant]
  8. BETAPACE [Concomitant]
  9. FLOMAX [Concomitant]
  10. LIPITOR [Concomitant]
  11. ADVAIR DISKUS 100/50 [Concomitant]
  12. PROTONIX [Concomitant]
  13. NIASPAN [Concomitant]
  14. ISOSORBIDE MONONITRATE [Concomitant]
  15. CYPHER STENT [Concomitant]
  16. REGLAN [Concomitant]
  17. PENTASA [Concomitant]
  18. NITROSTAT [Concomitant]
  19. JANUVIA [Concomitant]
  20. LISINOPRIL [Concomitant]
  21. LASIX [Concomitant]
  22. SYNTHROID [Concomitant]
  23. MERCAPTOPURINE [Concomitant]
  24. OMEGA-3 FATTY ACIDS [Concomitant]

REACTIONS (1)
  - IRON DEFICIENCY ANAEMIA [None]
